FAERS Safety Report 18600617 (Version 1)
Quarter: 2020Q4

REPORT INFORMATION
  Report Type: Report from Study
  Country: IT (occurrence: IT)
  Receive Date: 20201210
  Receipt Date: 20201210
  Transmission Date: 20210114
  Serious: Yes (Death, Other)
  Sender: FDA-Public Use
  Company Number: IT-INCYTE CORPORATION-2019IN008059

PATIENT

DRUGS (9)
  1. JAKAVI [Suspect]
     Active Substance: RUXOLITINIB
     Dosage: 40 OT
     Route: 065
     Dates: start: 20180219, end: 20180416
  2. JAKAVI [Suspect]
     Active Substance: RUXOLITINIB
     Indication: MYELOFIBROSIS
     Dosage: 20 OT
     Route: 065
     Dates: start: 20171129, end: 20171221
  3. JAKAVI [Suspect]
     Active Substance: RUXOLITINIB
     Dosage: 40 OT
     Route: 065
     Dates: start: 20180515, end: 20180610
  4. JAKAVI [Suspect]
     Active Substance: RUXOLITINIB
     Dosage: 30 OT
     Route: 065
     Dates: start: 20180611, end: 20180910
  5. JAKAVI [Suspect]
     Active Substance: RUXOLITINIB
     Dosage: 30 OT
     Route: 065
     Dates: start: 20181128
  6. JAKAVI [Suspect]
     Active Substance: RUXOLITINIB
     Dosage: 30 OT
     Route: 065
     Dates: start: 20171222, end: 20180218
  7. JAKAVI [Suspect]
     Active Substance: RUXOLITINIB
     Dosage: 30 OT
     Route: 065
     Dates: start: 20180417, end: 20180514
  8. JAKAVI [Suspect]
     Active Substance: RUXOLITINIB
     Dosage: 40 OT
     Route: 065
     Dates: start: 20180911, end: 20181127
  9. CYTOSINE ARABINOSIDE [Concomitant]
     Active Substance: CYTARABINE
     Indication: PRODUCT USED FOR UNKNOWN INDICATION
     Dosage: UNK
     Route: 065
     Dates: start: 20200115

REACTIONS (4)
  - Anaemia [Unknown]
  - Neutropenia [Recovered/Resolved]
  - Neutropenia [Unknown]
  - Sepsis [Fatal]

NARRATIVE: CASE EVENT DATE: 20180109
